FAERS Safety Report 7111123-0 (Version None)
Quarter: 2010Q4

REPORT INFORMATION
  Report Type: 
  Country: None (occurrence: None)
  Receive Date: 20101118
  Receipt Date: 20091029
  Transmission Date: 20110411
  Serious: No
  Sender: FDA-Public Use
  Company Number: US-TEVA-213760USA

PATIENT
  Sex: Female

DRUGS (1)
  1. ALBUTEROL SULFATE AUTOHALER [Suspect]
     Dosage: 2 PUFFS-4 TIMES A DAY
     Route: 055

REACTIONS (2)
  - ORAL DISCOMFORT [None]
  - OROPHARYNGEAL PAIN [None]
